FAERS Safety Report 24792948 (Version 1)
Quarter: 2024Q4

REPORT INFORMATION
  Report Type: Spontaneous
  Country: US (occurrence: None)
  Receive Date: 20241230
  Receipt Date: 20241230
  Transmission Date: 20250115
  Serious: No
  Sender: Public
  Company Number: None

PATIENT
  Age: 57 Year
  Sex: Male

DRUGS (6)
  1. EPIDIOLEX [Suspect]
     Active Substance: CANNABIDIOL
     Indication: Seizure
     Dosage: 5 ML BID ORAL ?
     Route: 048
     Dates: start: 20220609
  2. BRIVIACT [Concomitant]
     Active Substance: BRIVARACETAM
  3. OMEPRAZOLE [Concomitant]
     Active Substance: OMEPRAZOLE
  4. VIMPAT [Concomitant]
     Active Substance: LACOSAMIDE
  5. CETIRIZINE CHEW [Concomitant]
  6. DIASTAT ACUDIAL RECTAL #2 [Concomitant]

REACTIONS (1)
  - Seizure [None]

NARRATIVE: CASE EVENT DATE: 20241227
